FAERS Safety Report 19077045 (Version 1)
Quarter: 2021Q1

REPORT INFORMATION
  Report Type: Spontaneous
  Country: US (occurrence: US)
  Receive Date: 20210330
  Receipt Date: 20210330
  Transmission Date: 20210420
  Serious: Yes (Death, Life-Threatening, Hospitalization, Disabling)
  Sender: FDA-Public Use
  Company Number: None

PATIENT
  Age: 59 Year
  Sex: Male
  Weight: 85.5 kg

DRUGS (2)
  1. KLONOPIN [Suspect]
     Active Substance: CLONAZEPAM
     Indication: ANXIETY
     Route: 048
     Dates: start: 19980101, end: 20210213
  2. VALIUM [Suspect]
     Active Substance: DIAZEPAM

REACTIONS (6)
  - Drug tolerance [None]
  - Drug withdrawal syndrome [None]
  - Completed suicide [None]
  - Insomnia [None]
  - Adverse drug reaction [None]
  - Impaired work ability [None]
